FAERS Safety Report 9630254 (Version 1)
Quarter: 2013Q4

REPORT INFORMATION
  Report Type: Spontaneous
  Country: TR (occurrence: TR)
  Receive Date: 20131017
  Receipt Date: 20131017
  Transmission Date: 20140711
  Serious: Yes (Other)
  Sender: FDA-Public Use
  Company Number: TR-ABBVIE-13P-161-1156235-00

PATIENT
  Age: 7 Year
  Sex: Female

DRUGS (3)
  1. VALPROIC ACID [Suspect]
  2. TRICYCLIC ANTIDEPRESSANTS [Suspect]
     Indication: PRODUCT USED FOR UNKNOWN INDICATION
  3. MIGLUSTAT [Concomitant]
     Indication: NIEMANN-PICK DISEASE

REACTIONS (2)
  - Cataplexy [Unknown]
  - Drug resistance [Unknown]
